FAERS Safety Report 7483291-2 (Version None)
Quarter: 2011Q2

REPORT INFORMATION
  Report Type: 
  Country: None (occurrence: None)
  Receive Date: 20110517
  Receipt Date: 20110505
  Transmission Date: 20111010
  Serious: Yes (Other)
  Sender: FDA-Public Use
  Company Number: US-RANBAXY-2011US-44198

PATIENT

DRUGS (2)
  1. DONEPEZIL HYDROCHLORIDE [Suspect]
     Dosage: 10 MG, UNK
     Route: 065
  2. DONEPEZIL HYDROCHLORIDE [Suspect]
     Indication: DEMENTIA ALZHEIMER'S TYPE
     Dosage: 5 MG, UNK
     Route: 065

REACTIONS (3)
  - SLEEP DISORDER [None]
  - AGITATION [None]
  - HALLUCINATION [None]
